FAERS Safety Report 10395960 (Version 1)
Quarter: 2014Q1

REPORT INFORMATION
  Report Type: Spontaneous
  Country: US (occurrence: None)
  Receive Date: 20130524
  Receipt Date: 20130524
  Transmission Date: 20141002
  Serious: Yes (Hospitalization, Other)
  Sender: FDA-Public Use
  Company Number: PHEH2012US022776

PATIENT
  Age: 57 Year
  Sex: Female
  Weight: 72.6 kg

DRUGS (1)
  1. GILENYA (FINGOLIMOD) CAPSULE, 0.5MG [Suspect]
     Indication: MULTIPLE SCLEROSIS
     Route: 048
     Dates: start: 20110209

REACTIONS (4)
  - Multiple sclerosis relapse [None]
  - Peroneal nerve palsy [None]
  - Hemiparesis [None]
  - Hypoaesthesia [None]
